FAERS Safety Report 22356008 (Version 1)
Quarter: 2023Q2

REPORT INFORMATION
  Report Type: Spontaneous
  Country: FR (occurrence: FR)
  Receive Date: 20230523
  Receipt Date: 20230523
  Transmission Date: 20230721
  Serious: Yes (Other)
  Sender: FDA-Public Use
  Company Number: FR-AMGEN-FRASP2023086637

PATIENT
  Age: 13 Year
  Sex: Male

DRUGS (2)
  1. ADALIMUMAB [Suspect]
     Active Substance: ADALIMUMAB
     Indication: Juvenile idiopathic arthritis
     Dosage: UNK
     Route: 065
  2. METHOTREXATE SODIUM [Concomitant]
     Active Substance: METHOTREXATE SODIUM
     Indication: Juvenile idiopathic arthritis
     Dosage: UNK

REACTIONS (11)
  - Juvenile idiopathic arthritis [Unknown]
  - Multicentric reticulohistiocytosis [Recovering/Resolving]
  - Arthritis bacterial [Unknown]
  - Appendicitis [Unknown]
  - Interstitial lung disease [Recovering/Resolving]
  - Pulmonary fibrosis [Unknown]
  - Eosinophilia [Unknown]
  - Pulmonary mass [Unknown]
  - Lung disorder [Unknown]
  - Pleural disorder [Unknown]
  - Herpes zoster [Unknown]
